FAERS Safety Report 7454959-9 (Version None)
Quarter: 2011Q2

REPORT INFORMATION
  Report Type: 
  Country: None (occurrence: None)
  Receive Date: 20110503
  Receipt Date: 20110420
  Transmission Date: 20111010
  Serious: No
  Sender: FDA-Public Use
  Company Number: FR-ELI_LILLY_AND_COMPANY-FR201101003043

PATIENT
  Age: 32 Year
  Sex: Male
  Weight: 85 kg

DRUGS (5)
  1. ZYPADHERA [Suspect]
     Dosage: 300 MG, UNK
     Route: 030
     Dates: start: 20110107
  2. XANAX [Concomitant]
     Indication: ANXIETY
     Dosage: 0.25, TID
     Route: 048
  3. ZYPADHERA [Suspect]
     Indication: SCHIZOPHRENIA
     Dosage: 300 MG, EVERY 2 WEEKS
     Route: 030
     Dates: start: 20101221
  4. SERESTA [Concomitant]
     Indication: INSOMNIA
     Dosage: UNK
     Route: 048
  5. IMOVANE [Concomitant]
     Indication: INSOMNIA
     Dosage: UNK
     Route: 048

REACTIONS (8)
  - OEDEMA PERIPHERAL [None]
  - SOMNOLENCE [None]
  - AMNESIA [None]
  - FATIGUE [None]
  - DISORIENTATION [None]
  - MUSCLE CONTRACTURE [None]
  - NIGHTMARE [None]
  - CONFUSIONAL STATE [None]
